FAERS Safety Report 9689933 (Version 1)
Quarter: 2013Q4

REPORT INFORMATION
  Report Type: Spontaneous
  Country: US (occurrence: US)
  Receive Date: 20131115
  Receipt Date: 20131115
  Transmission Date: 20140711
  Serious: No
  Sender: FDA-Public Use
  Company Number: US-PFIZER INC-2013326726

PATIENT
  Age: 59 Year
  Sex: Female
  Weight: 45.35 kg

DRUGS (4)
  1. XANAX [Suspect]
     Indication: ANXIETY
     Dosage: 0.25 MG, 5X/DAY
  2. EFFEXOR XR [Suspect]
     Indication: DEPRESSION
     Dosage: 37.5 MG, DAILY
     Dates: start: 20131030
  3. EFFEXOR XR [Suspect]
     Indication: ANXIETY
  4. EFFEXOR XR [Suspect]
     Indication: NERVOUSNESS

REACTIONS (1)
  - Drug ineffective [Unknown]
